FAERS Safety Report 8786918 (Version 4)
Quarter: 2012Q4

REPORT INFORMATION
  Report Type: 
  Country: US (occurrence: US)
  Receive Date: 20120914
  Receipt Date: 20121018
  Transmission Date: 20130627
  Serious: Yes (Death, Hospitalization, Other)
  Sender: FDA-Public Use
  Company Number: US-BAXTER-2012BAX016732

PATIENT
  Age: 75 Year
  Sex: Female

DRUGS (2)
  1. DIANEAL LOW CALCIUM [Suspect]
     Indication: PERITONEAL DIALYSIS
     Route: 033
     Dates: end: 20120925
  2. DIANEAL LOW CALCIUM [Suspect]
     Indication: PERITONEAL DIALYSIS
     Route: 033
     Dates: end: 20120925

REACTIONS (5)
  - Lung neoplasm malignant [Fatal]
  - Rheumatoid arthritis [Recovering/Resolving]
  - Metastases to central nervous system [Recovering/Resolving]
  - Peritonitis bacterial [Recovering/Resolving]
  - Peritoneal dialysis complication [Recovering/Resolving]
